FAERS Safety Report 4773994-2 (Version None)
Quarter: 2005Q3

REPORT INFORMATION
  Report Type: 
  Country: None (occurrence: None)
  Receive Date: 20050920
  Receipt Date: 20050907
  Transmission Date: 20060218
  Serious: Yes (Hospitalization)
  Sender: FDA-Public Use
  Company Number: 2005AP04853

PATIENT
  Age: 19605 Day
  Sex: Male

DRUGS (6)
  1. ATENOLOL [Suspect]
     Indication: HYPERTENSION
     Route: 048
     Dates: start: 19980320, end: 19990510
  2. ATENOLOL [Suspect]
     Route: 048
     Dates: start: 19990501, end: 19990602
  3. PULMICORT [Concomitant]
     Route: 055
  4. TERBUTALINE [Concomitant]
     Route: 055
  5. BECOTIDE [Concomitant]
     Route: 045
  6. POTASSIUM [Concomitant]
     Dates: start: 19990601, end: 20041213

REACTIONS (2)
  - ASTHMA [None]
  - BRONCHITIS [None]
